FAERS Safety Report 8808505 (Version 1)
Quarter: 2012Q4

REPORT INFORMATION
  Report Type: 
  Country: US (occurrence: US)
  Receive Date: 20120926
  Receipt Date: 20120926
  Transmission Date: 20130627
  Serious: Yes (Death)
  Sender: FDA-Public Use
  Company Number: US-BAYER-2012-099134

PATIENT
  Age: 45 Year
  Sex: Female

DRUGS (3)
  1. YAZ [Suspect]
     Indication: OESTROGEN DEFICIENCY
  2. YASMIN [Suspect]
  3. AMBIEN CR [Concomitant]
     Dosage: 12.5 mg, UNK

REACTIONS (2)
  - Pulmonary embolism [Fatal]
  - Deep vein thrombosis [Fatal]
